FAERS Safety Report 10528127 (Version 1)
Quarter: 2014Q4

REPORT INFORMATION
  Report Type: Spontaneous
  Country: ES (occurrence: None)
  Receive Date: 20141016
  Receipt Date: 20141016
  Transmission Date: 20150528
  Serious: Yes (Other)
  Sender: FDA-Public Use
  Company Number: FK201404063

PATIENT
  Age: 45 Year
  Sex: Female

DRUGS (4)
  1. DEXCHLORPHENIRAMINE [Concomitant]
     Active Substance: DEXCHLORPHENIRAMINE
  2. FLUOROURACIL. [Concomitant]
     Active Substance: FLUOROURACIL
  3. FOLINIC ACID [Suspect]
     Active Substance: LEUCOVORIN
  4. OXALIPLATIN. [Suspect]
     Active Substance: OXALIPLATIN
     Indication: COLORECTAL CANCER METASTATIC

REACTIONS (7)
  - Lacrimation increased [None]
  - Infusion related reaction [None]
  - Rhinorrhoea [None]
  - Anaphylactic reaction [None]
  - Hypotension [None]
  - Pruritus generalised [None]
  - Dyspnoea [None]
